FAERS Safety Report 6192504-9 (Version None)
Quarter: 2009Q2

REPORT INFORMATION
  Report Type: 
  Country: None (occurrence: None)
  Receive Date: 20090518
  Receipt Date: 20090508
  Transmission Date: 20091009
  Serious: Yes (Other)
  Sender: FDA-Public Use
  Company Number: US-NOVOPROD-281202

PATIENT
  Sex: Female

DRUGS (10)
  1. VAGIFEM [Suspect]
     Indication: MENOPAUSE
     Dosage: UNKNOWN
  2. VAGIFEM [Suspect]
     Indication: CARDIOVASCULAR EVENT PROPHYLAXIS
  3. PREMARIN [Suspect]
     Indication: MENOPAUSE
  4. PREMARIN [Suspect]
     Indication: CARDIOVASCULAR EVENT PROPHYLAXIS
  5. ESTRACE [Suspect]
     Indication: MENOPAUSE
  6. ESTRACE [Suspect]
     Indication: CARDIOVASCULAR EVENT PROPHYLAXIS
  7. ESTRATEST [Suspect]
     Indication: MENOPAUSE
  8. ESTRATEST [Suspect]
     Indication: CARDIOVASCULAR EVENT PROPHYLAXIS
  9. ESTRADIOL [Suspect]
     Indication: MENOPAUSE
  10. ESTRADIOL [Suspect]
     Indication: CARDIOVASCULAR EVENT PROPHYLAXIS

REACTIONS (1)
  - BREAST CANCER METASTATIC [None]
